FAERS Safety Report 11656449 (Version 3)
Quarter: 2015Q4

REPORT INFORMATION
  Report Type: Report from Study
  Country: AR (occurrence: AR)
  Receive Date: 20151023
  Receipt Date: 20151028
  Transmission Date: 20160304
  Serious: Yes (Other)
  Sender: FDA-Public Use
  Company Number: PHHY2015AR125055

PATIENT
  Sex: Male

DRUGS (1)
  1. ULTIBRO BREEZHALER [Suspect]
     Active Substance: GLYCOPYRRONIUM\INDACATEROL
     Indication: CHRONIC OBSTRUCTIVE PULMONARY DISEASE
     Dosage: 1 DF, QD, IN THE MORNING
     Route: 065

REACTIONS (7)
  - Productive cough [Unknown]
  - Cough [Unknown]
  - Syncope [Unknown]
  - Overweight [Unknown]
  - Musculoskeletal chest pain [Unknown]
  - Agitation [Unknown]
  - Respiratory disorder [Unknown]
